FAERS Safety Report 20632609 (Version 1)
Quarter: 2022Q1

REPORT INFORMATION
  Report Type: Report from Study
  Country: BR (occurrence: BR)
  Receive Date: 20220324
  Receipt Date: 20220324
  Transmission Date: 20220423
  Serious: Yes (Other)
  Sender: FDA-Public Use
  Company Number: BR-TAKEDA-2022TUS019333

PATIENT
  Age: 23 Year
  Sex: Male

DRUGS (2)
  1. VEDOLIZUMAB [Suspect]
     Active Substance: VEDOLIZUMAB
     Indication: Colitis ulcerative
     Dosage: UNK
     Route: 042
  2. VEDOLIZUMAB [Suspect]
     Active Substance: VEDOLIZUMAB
     Indication: Crohn^s disease

REACTIONS (1)
  - Drug hypersensitivity [Recovering/Resolving]

NARRATIVE: CASE EVENT DATE: 20160201
